FAERS Safety Report 16268285 (Version 1)
Quarter: 2019Q2

REPORT INFORMATION
  Report Type: Spontaneous
  Country: US (occurrence: US)
  Receive Date: 20190503
  Receipt Date: 20190503
  Transmission Date: 20190711
  Serious: No
  Sender: FDA-Public Use
  Company Number: US-AMGEN-USASP2019067693

PATIENT
  Sex: Female

DRUGS (1)
  1. PROLIA [Suspect]
     Active Substance: DENOSUMAB
     Indication: OSTEOPOROSIS POSTMENOPAUSAL
     Dosage: 60 MILLIGRAM, Q6MO
     Route: 065
     Dates: start: 201809

REACTIONS (6)
  - Arthritis [Unknown]
  - Paraesthesia [Unknown]
  - Peripheral swelling [Unknown]
  - Muscular weakness [Unknown]
  - Urinary tract infection [Unknown]
  - Skin irritation [Unknown]

NARRATIVE: CASE EVENT DATE: 201903
